FAERS Safety Report 26020503 (Version 1)
Quarter: 2025Q4

REPORT INFORMATION
  Report Type: Spontaneous
  Country: EU (occurrence: EU)
  Receive Date: 20251110
  Receipt Date: 20251110
  Transmission Date: 20260118
  Serious: Yes (Death, Life-Threatening, Hospitalization)
  Sender: AMGEN
  Company Number: EU-AMGEN-FRASP2025220718

PATIENT

DRUGS (2)
  1. BEVACIZUMAB [Suspect]
     Active Substance: BEVACIZUMAB
     Indication: Hepatocellular carcinoma
     Dosage: UNK
     Route: 065
  2. ATEZOLIZUMAB [Concomitant]
     Active Substance: ATEZOLIZUMAB
     Indication: Hepatocellular carcinoma

REACTIONS (7)
  - Hepatic cirrhosis [Fatal]
  - Hepatocellular carcinoma [Fatal]
  - Death [Fatal]
  - Unevaluable event [Unknown]
  - Drug intolerance [Unknown]
  - General physical health deterioration [Unknown]
  - Off label use [Unknown]
